FAERS Safety Report 9340794 (Version 2)
Quarter: 2014Q2

REPORT INFORMATION
  Report Type: Spontaneous
  Country: US (occurrence: US)
  Receive Date: 20130610
  Receipt Date: 20140523
  Transmission Date: 20141212
  Serious: Yes (Hospitalization, Other)
  Sender: FDA-Public Use
  Company Number: US-TEVA-410132USA

PATIENT
  Age: 80 Year
  Sex: Male

DRUGS (5)
  1. OLANZAPINE [Suspect]
     Indication: BIPOLAR DISORDER
     Dosage: 10 MILLIGRAM DAILY;
     Route: 065
  2. ASPIRIN [Concomitant]
     Route: 065
  3. AMLODIPINE [Concomitant]
     Route: 065
  4. INSULIN [Concomitant]
     Indication: DIABETES MELLITUS
     Route: 065
  5. DONEPEZIL [Concomitant]

REACTIONS (1)
  - Hypothermia [Recovered/Resolved]
